FAERS Safety Report 4565484-7 (Version None)
Quarter: 2005Q1

REPORT INFORMATION
  Report Type: 
  Country: None (occurrence: None)
  Receive Date: 20050126
  Receipt Date: 20050106
  Transmission Date: 20050727
  Serious: Yes (Other)
  Sender: FDA-Public Use
  Company Number: USA050187692

PATIENT
  Age: 60 Year
  Sex: Female
  Weight: 89 kg

DRUGS (3)
  1. GEMZAR [Suspect]
     Indication: NON-SMALL CELL LUNG CANCER STAGE IV
     Dosage: 1950 MG OTHER
     Dates: start: 20040910, end: 20041216
  2. CARBOPLATIN [Concomitant]
  3. RADIOTHERAPY [Concomitant]

REACTIONS (4)
  - PRURITUS [None]
  - RADIATION SKIN INJURY [None]
  - RECALL PHENOMENON [None]
  - SKIN FIBROSIS [None]
